FAERS Safety Report 11807323 (Version 2)
Quarter: 2015Q4

REPORT INFORMATION
  Report Type: Spontaneous
  Country: JP (occurrence: JP)
  Receive Date: 20151207
  Receipt Date: 20151223
  Transmission Date: 20160305
  Serious: No
  Sender: FDA-Public Use
  Company Number: JP-UCBSA-2015038366

PATIENT
  Age: 68 Year
  Sex: Female

DRUGS (5)
  1. KEPPRA [Suspect]
     Active Substance: LEVETIRACETAM
     Indication: SEIZURE
     Dosage: 1000 MG DAILY
     Route: 048
     Dates: start: 20151119, end: 20151124
  2. GASTER [Suspect]
     Active Substance: FAMOTIDINE
     Indication: PRODUCT USED FOR UNKNOWN INDICATION
     Dosage: UNK
     Route: 042
     Dates: end: 2015
  3. DECADRON [Suspect]
     Active Substance: DEXAMETHASONE
     Indication: CACHEXIA
     Dosage: UNK
     Route: 042
     Dates: end: 2015
  4. ZOSYN [Suspect]
     Active Substance: PIPERACILLIN SODIUM\TAZOBACTAM SODIUM
     Indication: WHITE BLOOD CELL COUNT INCREASED
     Dosage: UNK
     Route: 042
     Dates: start: 20151119, end: 20151125
  5. ACETAMINOPHEN. [Suspect]
     Active Substance: ACETAMINOPHEN
     Indication: PRODUCT USED FOR UNKNOWN INDICATION
     Dosage: UNK
     Route: 042
     Dates: end: 2015

REACTIONS (1)
  - Platelet count decreased [Unknown]

NARRATIVE: CASE EVENT DATE: 20151124
